FAERS Safety Report 24317700 (Version 1)
Quarter: 2024Q3

REPORT INFORMATION
  Report Type: Spontaneous
  Country: US (occurrence: US)
  Receive Date: 20240913
  Receipt Date: 20240913
  Transmission Date: 20241016
  Serious: No
  Sender: PFIZER
  Company Number: US-PFIZER INC-PV202400119798

PATIENT
  Age: 71 Year
  Sex: Female

DRUGS (3)
  1. TUKYSA [Interacting]
     Active Substance: TUCATINIB
     Dosage: TWO 150 MG TABLETS TWICE A DAY
  2. ELACESTRANT [Interacting]
     Active Substance: ELACESTRANT
     Dosage: UNK
  3. ORSERDU [Interacting]
     Active Substance: ELACESTRANT
     Dosage: UNK

REACTIONS (1)
  - Drug interaction [Unknown]
